FAERS Safety Report 9247452 (Version 2)
Quarter: 2014Q1

REPORT INFORMATION
  Report Type: Spontaneous
  Country: US (occurrence: US)
  Receive Date: 20130423
  Receipt Date: 20140311
  Transmission Date: 20141002
  Serious: Yes (Other)
  Sender: FDA-Public Use
  Company Number: US-SANOFI-AVENTIS-2013SA040558

PATIENT
  Age: 68 Year
  Sex: Male
  Weight: 102 kg

DRUGS (5)
  1. MULTAQ [Suspect]
     Indication: ATRIAL FIBRILLATION
     Route: 065
     Dates: start: 20101001
  2. METOPROLOL TARTRATE [Concomitant]
     Indication: CARDIAC OPERATION
     Dosage: 2/50 MG
     Route: 065
     Dates: start: 200506
  3. WARFARIN [Concomitant]
     Indication: ANTICOAGULANT THERAPY
     Route: 065
     Dates: start: 200506
  4. LISINOPRIL [Concomitant]
     Indication: BLOOD PRESSURE
     Route: 065
     Dates: start: 200506
  5. LIPITOR [Concomitant]
     Indication: BLOOD CHOLESTEROL ABNORMAL
     Route: 065
     Dates: start: 2010

REACTIONS (8)
  - Bladder cancer [Recovered/Resolved]
  - Pneumonia [Recovered/Resolved]
  - Atrial fibrillation [Not Recovered/Not Resolved]
  - Bronchitis [Recovered/Resolved]
  - Infection [Unknown]
  - Wheezing [Recovered/Resolved]
  - Nasopharyngitis [Recovered/Resolved]
  - Dyspnoea [Recovered/Resolved]
